FAERS Safety Report 18330434 (Version 1)
Quarter: 2020Q3

REPORT INFORMATION
  Report Type: Spontaneous
  Country: FR (occurrence: FR)
  Receive Date: 20200930
  Receipt Date: 20200930
  Transmission Date: 20201103
  Serious: Yes (Other)
  Sender: FDA-Public Use
  Company Number: FR-MYLANLABS-2020M1081874

PATIENT
  Age: 49 Year
  Sex: Female

DRUGS (2)
  1. SPIRAMYCINE/METRONIDAZOLE ARROW [Suspect]
     Active Substance: METRONIDAZOLE\SPIRAMYCIN
     Indication: TOOTH DISORDER
     Dosage: UNK
     Route: 065
  2. TRANEXAMIC ACID. [Suspect]
     Active Substance: TRANEXAMIC ACID
     Indication: MENORRHAGIA
     Dosage: UNK
     Route: 065

REACTIONS (6)
  - Tenderness [Unknown]
  - Arterial intramural haematoma [Unknown]
  - Headache [Unknown]
  - Iron deficiency anaemia [Unknown]
  - Carotidynia [Unknown]
  - Neck pain [Unknown]
